FAERS Safety Report 8578525-7 (Version None)
Quarter: 2012Q3

REPORT INFORMATION
  Report Type: 
  Country: None (occurrence: None)
  Receive Date: 20120808
  Receipt Date: 20120730
  Transmission Date: 20120928
  Serious: Yes (Life-Threatening)
  Sender: FDA-Public Use
  Company Number: JP-GE HEALTHCARE MEDICAL DIAGNOSTICS-OMPQ-NO-1208S-0844

PATIENT
  Age: 30 Year
  Sex: Male

DRUGS (1)
  1. OMNIPAQUE 140 [Suspect]
     Indication: APPENDICITIS
     Route: 042
     Dates: start: 20120620, end: 20120620

REACTIONS (5)
  - BLOOD PRESSURE DECREASED [None]
  - PRURITUS [None]
  - ERYTHEMA [None]
  - HYPOAESTHESIA [None]
  - VOMITING [None]
